FAERS Safety Report 12254910 (Version 2)
Quarter: 2017Q3

REPORT INFORMATION
  Report Type: Report from Study
  Country: US (occurrence: US)
  Receive Date: 20160411
  Receipt Date: 20170830
  Transmission Date: 20171127
  Serious: Yes (Hospitalization, Other)
  Sender: FDA-Public Use
  Company Number: US-BIOGEN-2016BI00215657

PATIENT
  Sex: Female

DRUGS (3)
  1. AVONEX [Suspect]
     Active Substance: INTERFERON BETA-1A
     Indication: MULTIPLE SCLEROSIS
     Route: 030
     Dates: start: 1998
  2. AVONEX [Suspect]
     Active Substance: INTERFERON BETA-1A
     Route: 030
     Dates: start: 19991201, end: 20011201
  3. BETASERON [Concomitant]
     Active Substance: INTERFERON BETA-1B
     Indication: PRODUCT USED FOR UNKNOWN INDICATION
     Route: 065

REACTIONS (14)
  - Respiratory failure [Unknown]
  - Chronic obstructive pulmonary disease [Not Recovered/Not Resolved]
  - White blood cell count decreased [Recovered/Resolved]
  - Clostridium difficile colitis [Recovered/Resolved]
  - Joint injury [Unknown]
  - Multiple sclerosis relapse [Not Recovered/Not Resolved]
  - Multiple sclerosis [Not Recovered/Not Resolved]
  - Generalised tonic-clonic seizure [Not Recovered/Not Resolved]
  - Epilepsy [Not Recovered/Not Resolved]
  - Fall [Unknown]
  - Mobility decreased [Not Recovered/Not Resolved]
  - Memory impairment [Unknown]
  - Cognitive disorder [Not Recovered/Not Resolved]
  - Arthritis [Not Recovered/Not Resolved]

NARRATIVE: CASE EVENT DATE: 1998
